FAERS Safety Report 13497769 (Version 1)
Quarter: 2017Q2

REPORT INFORMATION
  Report Type: Spontaneous
  Country: FR (occurrence: FR)
  Receive Date: 20170428
  Receipt Date: 20170428
  Transmission Date: 20170830
  Serious: Yes (Other)
  Sender: FDA-Public Use
  Company Number: FR-BAYER-2017-077851

PATIENT
  Age: 43 Year
  Sex: Male

DRUGS (1)
  1. IZILOX [Suspect]
     Active Substance: MOXIFLOXACIN HYDROCHLORIDE
     Indication: SINUSITIS
     Dosage: 400 MG/DAY
     Route: 048

REACTIONS (5)
  - Iris transillumination defect [None]
  - Photophobia [None]
  - Ocular hyperaemia [None]
  - Visual acuity reduced [None]
  - Mydriasis [None]
